FAERS Safety Report 5361344-2 (Version None)
Quarter: 2007Q2

REPORT INFORMATION
  Report Type: 
  Country: None (occurrence: None)
  Receive Date: 20070612
  Receipt Date: 20070529
  Transmission Date: 20071010
  Serious: Yes (Other)
  Sender: FDA-Public Use
  Company Number: SPV1-2007-02113

PATIENT
  Age: 56 Year
  Sex: Male

DRUGS (2)
  1. PENTASA [Suspect]
     Indication: COLITIS ULCERATIVE
     Dosage: 750 MG, 3X/DAY;TID, ORAL
     Route: 048
     Dates: start: 20070226, end: 20070325
  2. BUSCOPAN /00008702/ (HYOSCINE BUTYLBROMIDE) [Concomitant]

REACTIONS (2)
  - EOSINOPHILIC PNEUMONIA [None]
  - GASTROENTERITIS [None]
